FAERS Safety Report 21932565 (Version 1)
Quarter: 2023Q1

REPORT INFORMATION
  Report Type: Spontaneous
  Country: FR (occurrence: FR)
  Receive Date: 20230131
  Receipt Date: 20230131
  Transmission Date: 20230418
  Serious: Yes (Life-Threatening)
  Sender: FDA-Public Use
  Company Number: FR-PHARMAAND-2023PHR00013

PATIENT
  Age: 34 Year
  Sex: Male

DRUGS (1)
  1. PEGASYS [Suspect]
     Active Substance: PEGINTERFERON ALFA-2A
     Indication: Budd-Chiari syndrome
     Dosage: 90 MICROGRAMS PER WEEK THEN 135 MICROGRAMS PER WEEK
     Route: 058
     Dates: start: 20220928, end: 202210

REACTIONS (3)
  - Acute hepatic failure [Recovering/Resolving]
  - Hepatic failure [Recovering/Resolving]
  - Off label use [Recovered/Resolved]

NARRATIVE: CASE EVENT DATE: 20221001
